FAERS Safety Report 8624632-X (Version None)
Quarter: 2012Q3

REPORT INFORMATION
  Report Type: 
  Country: None (occurrence: None)
  Receive Date: 20120827
  Receipt Date: 20120816
  Transmission Date: 20120928
  Serious: Yes (Other)
  Sender: FDA-Public Use
  Company Number: US-CELGENEUS-163-21880-12040613

PATIENT

DRUGS (4)
  1. REVLIMID [Suspect]
     Dosage: 10 MILLIGRAM
     Route: 048
  2. EZATIOSTAT [Suspect]
     Dosage: 2000 MILLIGRAM
     Route: 065
  3. EZATIOSTAT [Suspect]
     Dosage: 2500 MILLIGRAM
     Route: 065
  4. RED BLOOD CELLS [Concomitant]
     Dosage: 4-10 UNITS (MEDIAN 6 UNITS)
     Route: 041

REACTIONS (30)
  - HYPERSENSITIVITY [None]
  - NEUTROPENIA [None]
  - VOMITING [None]
  - DYSGEUSIA [None]
  - ABDOMINAL PAIN UPPER [None]
  - THROMBOCYTOPENIA [None]
  - MUSCULAR WEAKNESS [None]
  - FLATULENCE [None]
  - SWELLING FACE [None]
  - GASTRITIS EROSIVE [None]
  - FEBRILE NEUTROPENIA [None]
  - ANAEMIA [None]
  - NAUSEA [None]
  - GOUT [None]
  - SWELLING [None]
  - EPISTAXIS [None]
  - SKIN ODOUR ABNORMAL [None]
  - NIGHT SWEATS [None]
  - DECREASED APPETITE [None]
  - OEDEMA PERIPHERAL [None]
  - RASH [None]
  - SYNCOPE [None]
  - OCCULT BLOOD POSITIVE [None]
  - MUSCLE SPASMS [None]
  - FATIGUE [None]
  - FLANK PAIN [None]
  - CONSTIPATION [None]
  - RENAL FAILURE ACUTE [None]
  - DIARRHOEA [None]
  - CHILLS [None]
